FAERS Safety Report 25277270 (Version 1)
Quarter: 2025Q2

REPORT INFORMATION
  Report Type: Other
  Country: US (occurrence: US)
  Receive Date: 20250507
  Receipt Date: 20250507
  Transmission Date: 20250717
  Serious: Yes (Other)
  Sender: APPCO PHARMA LLC
  Company Number: US-Appco Pharma LLC-2176306

PATIENT
  Age: 58 Year
  Sex: Male

DRUGS (4)
  1. METRONIDAZOLE [Suspect]
     Active Substance: METRONIDAZOLE
     Indication: Enterococcal infection
  2. METRONIDAZOLE [Suspect]
     Active Substance: METRONIDAZOLE
     Indication: Escherichia infection
  3. AMOXICILLIN AND CLAVULANATE POTASSIUM [Suspect]
     Active Substance: AMOXICILLIN\CLAVULANATE POTASSIUM
  4. CEFTRIAXONE [Suspect]
     Active Substance: CEFTRIAXONE

REACTIONS (3)
  - Cholangitis sclerosing [Unknown]
  - Hepatic cirrhosis [Unknown]
  - Drug-induced liver injury [Unknown]
